FAERS Safety Report 4452157-4 (Version None)
Quarter: 2004Q3

REPORT INFORMATION
  Report Type: 
  Country: None (occurrence: None)
  Receive Date: 20040913
  Receipt Date: 20040717
  Transmission Date: 20050211
  Serious: No
  Sender: FDA-Public Use
  Company Number: 2004-BP-05810BP

PATIENT
  Sex: 0

DRUGS (1)
  1. SPIRIVA [Suspect]
     Dosage: 18 MCG, IH
     Route: 055

REACTIONS (3)
  - OEDEMA [None]
  - STOMATITIS [None]
  - TREMOR [None]
